FAERS Safety Report 7671723-6 (Version None)
Quarter: 2011Q3

REPORT INFORMATION
  Report Type: 
  Country: None (occurrence: None)
  Receive Date: 20110809
  Receipt Date: 20110803
  Transmission Date: 20111222
  Serious: Yes (Other)
  Sender: FDA-Public Use
  Company Number: US-PFIZER INC-2011142899

PATIENT
  Sex: Female
  Weight: 102.4 kg

DRUGS (8)
  1. LYRICA [Suspect]
     Indication: ARTHRITIS
     Dosage: 150 MG, 2X/DAY
  2. CYMBALTA [Concomitant]
     Dosage: UNK
  3. FLEXERIL [Concomitant]
     Dosage: UNK, AS NEEDED
  4. PREVACID [Concomitant]
     Dosage: UNK
  5. AMBIEN [Concomitant]
     Dosage: UNK, AS NEEDED
  6. LYRICA [Suspect]
     Indication: NEURALGIA
     Dosage: 150 MG, 3X/DAY
  7. LYRICA [Suspect]
     Indication: FIBROMYALGIA
     Dosage: 150 MG, 1X/DAY
     Route: 048
     Dates: start: 20100101
  8. DICLOFENAC [Concomitant]
     Indication: ARTHRITIS
     Dosage: UNK

REACTIONS (1)
  - RENAL DISORDER [None]
